FAERS Safety Report 6261285-2 (Version None)
Quarter: 2009Q3

REPORT INFORMATION
  Report Type: 
  Country: None (occurrence: None)
  Receive Date: 20090709
  Receipt Date: 20090402
  Transmission Date: 20100115
  Serious: No
  Sender: FDA-Public Use
  Company Number: US-KINGPHARMUSA00001-K200900382

PATIENT
  Age: 64 Year
  Sex: Male

DRUGS (6)
  1. LEVOXYL [Suspect]
     Indication: HYPOTHYROIDISM
     Dosage: 50 MCG, QD
     Route: 048
     Dates: start: 20090201, end: 20090301
  2. LEVOXYL [Suspect]
     Dosage: 75 MCG, QD
     Route: 048
     Dates: start: 20090301, end: 20090331
  3. ASPIRIN [Concomitant]
     Dosage: UNK
     Route: 048
  4. GLUCOSAMINE /CHOND                 /03040701/ [Concomitant]
     Indication: ARTHRITIS
     Dosage: UNK
     Route: 048
  5. CENTRUM                            /00554501/ [Concomitant]
     Dosage: UNK
     Route: 048
  6. VITAMIN A [Concomitant]
     Dosage: UNK
     Route: 048

REACTIONS (1)
  - DYSGEUSIA [None]
